FAERS Safety Report 6492505-7 (Version None)
Quarter: 2009Q4

REPORT INFORMATION
  Report Type: 
  Country: None (occurrence: None)
  Receive Date: 20091208
  Receipt Date: 20091125
  Transmission Date: 20100525
  Serious: Yes (Congenital Anomaly)
  Sender: FDA-Public Use
  Company Number: ADR52352009

PATIENT

DRUGS (1)
  1. SERTRALINE 50 MG (MFR: UNKNOWN) [Suspect]
     Indication: DEPRESSION
     Dosage: 50 MG, 1/1DAYS, TRANSPLACENTAL
     Route: 064

REACTIONS (2)
  - CONGENITAL HAND MALFORMATION [None]
  - MATERNAL DRUGS AFFECTING FOETUS [None]
